FAERS Safety Report 8465831 (Version 2)
Quarter: 2012Q4

REPORT INFORMATION
  Report Type: 
  Country: VE (occurrence: VE)
  Receive Date: 20120319
  Receipt Date: 20121018
  Transmission Date: 20130627
  Serious: Yes (Death, Hospitalization, Other)
  Sender: FDA-Public Use
  Company Number: PHHY2012VE022605

PATIENT
  Sex: Female

DRUGS (5)
  1. EXELON PATCH [Suspect]
     Indication: DEMENTIA ALZHEIMER^S TYPE
     Dosage: UNK UKN, UNK
     Route: 062
     Dates: start: 200707, end: 201106
  2. PLAVIX [Concomitant]
     Dosage: UNK UKN, QD
     Route: 048
  3. EVISTA [Concomitant]
     Dosage: UNK UKN, UNK
  4. EBIXA [Concomitant]
     Indication: DEMENTIA ALZHEIMER^S TYPE
     Dosage: UNK UKN, QD
     Route: 048
  5. REMERON [Concomitant]
     Indication: DEPRESSION
     Dosage: 30 mg, PRN
     Route: 048

REACTIONS (8)
  - Lung disorder [Fatal]
  - Pneumonia [Unknown]
  - Femur fracture [Unknown]
  - Coordination abnormal [Unknown]
  - Disease progression [Unknown]
  - Respiratory disorder [Unknown]
  - Gait disturbance [Unknown]
  - Fall [Unknown]
